FAERS Safety Report 8514859-X (Version None)
Quarter: 2012Q3

REPORT INFORMATION
  Report Type: 
  Country: None (occurrence: None)
  Receive Date: 20120717
  Receipt Date: 20120711
  Transmission Date: 20120928
  Serious: Yes (Hospitalization, Other)
  Sender: FDA-Public Use
  Company Number: AR-ABBOTT-12P-007-0946296-00

PATIENT
  Sex: Female

DRUGS (1)
  1. HUMIRA [Suspect]
     Indication: RHEUMATOID ARTHRITIS
     Route: 058
     Dates: start: 20080401, end: 20120525

REACTIONS (8)
  - DYSPNOEA [None]
  - PNEUMONIA STAPHYLOCOCCAL [None]
  - WEIGHT DECREASED [None]
  - PNEUMONIA STREPTOCOCCAL [None]
  - SJOGREN'S SYNDROME [None]
  - PULMONARY EMBOLISM [None]
  - HEPATIC CIRRHOSIS [None]
  - BICYTOPENIA [None]
